FAERS Safety Report 25083243 (Version 1)
Quarter: 2025Q1

REPORT INFORMATION
  Report Type: Spontaneous
  Country: CN (occurrence: CN)
  Receive Date: 20250317
  Receipt Date: 20250317
  Transmission Date: 20250408
  Serious: Yes (Disabling)
  Sender: ROCHE
  Company Number: CN-ROCHE-10000231256

PATIENT
  Age: 57 Year
  Sex: Female
  Weight: 68 kg

DRUGS (4)
  1. PERTUZUMAB [Suspect]
     Active Substance: PERTUZUMAB
     Indication: Breast cancer
     Dosage: ACCORDING TO THE DESCRIPTION, WE BELIEVE THAT THE ADMINISTRATION TIME SHOULD BE JANUARY 17
     Route: 042
     Dates: start: 20250117, end: 20250117
  2. TRASTUZUMAB [Suspect]
     Active Substance: TRASTUZUMAB
     Indication: Breast cancer
     Dosage: ACCORDING TO THE DESCRIPTION, WE BELIEVE THAT THE ADMINISTRATION TIME SHOULD BE JANUARY 17
     Route: 042
     Dates: start: 20250117, end: 20250117
  3. CARBOPLATIN [Suspect]
     Active Substance: CARBOPLATIN
     Indication: Breast cancer
     Route: 042
     Dates: start: 20250116, end: 20250116
  4. DOCETAXEL [Suspect]
     Active Substance: DOCETAXEL
     Indication: Breast cancer
     Route: 042
     Dates: start: 20250116, end: 20250116

REACTIONS (1)
  - Myelosuppression [Recovering/Resolving]

NARRATIVE: CASE EVENT DATE: 20250123
